FAERS Safety Report 7019953-0 (Version None)
Quarter: 2010Q3

REPORT INFORMATION
  Report Type: 
  Country: None (occurrence: None)
  Receive Date: 20100927
  Receipt Date: 20100914
  Transmission Date: 20110219
  Serious: Yes (Other)
  Sender: FDA-Public Use
  Company Number: B0675804A

PATIENT
  Sex: 0

DRUGS (1)
  1. LAPATINIB (FORMULATION UNKNOWN) (GENERIC) (LAPATINIB) [Suspect]
     Indication: NEOPLASM MALIGNANT

REACTIONS (1)
  - RASH [None]
